FAERS Safety Report 24788837 (Version 3)
Quarter: 2025Q1

REPORT INFORMATION
  Report Type: Spontaneous
  Country: US (occurrence: US)
  Receive Date: 20241230
  Receipt Date: 20250203
  Transmission Date: 20250408
  Serious: Yes (Other)
  Sender: DAIICHI
  Company Number: US-DAIICHI SANKYO, INC.-DS-2024-116600-USAA

PATIENT
  Sex: Female

DRUGS (4)
  1. ENHERTU [Suspect]
     Active Substance: FAM-TRASTUZUMAB DERUXTECAN-NXKI
     Indication: Anal cancer stage III
     Route: 041
     Dates: start: 20241213
  2. DEXAMETHASONE [Concomitant]
     Active Substance: DEXAMETHASONE
     Indication: Premedication
     Route: 065
  3. DIPHENHYDRAMINE [Concomitant]
     Active Substance: DIPHENHYDRAMINE
     Indication: Premedication
     Route: 065
  4. VADIL [Concomitant]
     Indication: Product used for unknown indication
     Route: 065

REACTIONS (17)
  - Dehydration [Unknown]
  - Balance disorder [Unknown]
  - Dysarthria [Unknown]
  - Dry mouth [Unknown]
  - Feeling abnormal [Unknown]
  - Insomnia [Unknown]
  - Somnolence [Unknown]
  - Energy increased [Unknown]
  - Sleep disorder [Unknown]
  - Food craving [Unknown]
  - Constipation [Unknown]
  - Chest discomfort [Unknown]
  - Fatigue [Unknown]
  - Fatigue [Unknown]
  - Cough [Unknown]
  - Fatigue [Unknown]
  - Product dose omission issue [Unknown]

NARRATIVE: CASE EVENT DATE: 20241201
